FAERS Safety Report 4654796-4 (Version None)
Quarter: 2005Q2

REPORT INFORMATION
  Report Type: 
  Country: None (occurrence: None)
  Receive Date: 20050505
  Receipt Date: 20050505
  Transmission Date: 20051028
  Serious: Yes (Other)
  Sender: FDA-Public Use
  Company Number: None

PATIENT
  Age: 38 Year
  Sex: Female
  Weight: 56.6996 kg

DRUGS (2)
  1. BEXTRA [Suspect]
     Indication: RHEUMATOID ARTHRITIS
     Dosage: 1 A DAY    ORAL
     Route: 048
     Dates: start: 20040305, end: 20050404
  2. BEXTRA [Suspect]
     Indication: WRIST FRACTURE
     Dosage: 1 A DAY    ORAL
     Route: 048
     Dates: start: 20040305, end: 20050404

REACTIONS (2)
  - DIARRHOEA HAEMORRHAGIC [None]
  - HAEMATEMESIS [None]
